FAERS Safety Report 14590375 (Version 11)
Quarter: 2020Q4

REPORT INFORMATION
  Report Type: Spontaneous
  Country: US (occurrence: US)
  Receive Date: 20180302
  Receipt Date: 20201005
  Transmission Date: 20210113
  Serious: Yes (Other)
  Sender: FDA-Public Use
  Company Number: US-PFIZER INC-2018085235

PATIENT
  Age: 59 Year
  Sex: Male
  Weight: 134 kg

DRUGS (9)
  1. DILANTIN [Suspect]
     Active Substance: PHENYTOIN
     Indication: SEIZURE
     Dosage: 400 MG, DAILY (2 CAP MORNING AND 2 IN EVENING)
     Dates: start: 1998
  2. CITOPRAM [Concomitant]
     Dosage: 20 MG, UNK
  3. DILANTIN [Suspect]
     Active Substance: PHENYTOIN
     Dosage: 100 MG, 4X/DAY (2 IN THE MORNING AND 2 IN THE EVENING)
     Route: 048
  4. METFORMIN [Concomitant]
     Active Substance: METFORMIN HYDROCHLORIDE
     Indication: BLOOD GLUCOSE INCREASED
     Dosage: UNK
     Dates: start: 2017
  5. DILANTIN [Suspect]
     Active Substance: PHENYTOIN
     Dosage: 200 MG, 2X/DAY (2 TAB TWICE A DAY)
  6. ALLOPURINOL. [Concomitant]
     Active Substance: ALLOPURINOL
     Dosage: 30 MG, UNK
  7. TORSEMIDE. [Concomitant]
     Active Substance: TORSEMIDE
     Dosage: 100 MG, UNK
  8. AMLODIPINE [Concomitant]
     Active Substance: AMLODIPINE BESYLATE
     Dosage: 10 MG, UNK
  9. ATORVASTATIN [Concomitant]
     Active Substance: ATORVASTATIN
     Dosage: 80 MG, UNK

REACTIONS (6)
  - Visual field defect [Unknown]
  - Thrombosis [Unknown]
  - Dysgraphia [Unknown]
  - Fall [Unknown]
  - Balance disorder [Unknown]
  - Poor peripheral circulation [Unknown]
